FAERS Safety Report 17019792 (Version 1)
Quarter: 2019Q4

REPORT INFORMATION
  Report Type: Spontaneous
  Country: US (occurrence: US)
  Receive Date: 20191112
  Receipt Date: 20191112
  Transmission Date: 20200122
  Serious: No
  Sender: FDA-Public Use
  Company Number: US-BTG-201900126

PATIENT

DRUGS (1)
  1. CROFAB [Suspect]
     Active Substance: CROTALIDAE POLYVALENT IMMUNE FAB (OVINE)
     Indication: SNAKE BITE
     Dosage: 3 VIALS
     Route: 065

REACTIONS (6)
  - Peripheral swelling [Recovering/Resolving]
  - Ecchymosis [Recovering/Resolving]
  - Inappropriate schedule of product administration [Unknown]
  - Coagulopathy [Unknown]
  - Underdose [Unknown]
  - Activated partial thromboplastin time prolonged [Unknown]
